FAERS Safety Report 5425851-6 (Version None)
Quarter: 2007Q3

REPORT INFORMATION
  Report Type: 
  Country: None (occurrence: None)
  Receive Date: 20070824
  Receipt Date: 20070813
  Transmission Date: 20080115
  Serious: Yes (Other)
  Sender: FDA-Public Use
  Company Number: 17213

PATIENT
  Age: 28 Year
  Sex: Male

DRUGS (2)
  1. METHOTREXATE [Suspect]
     Indication: CENTRAL NERVOUS SYSTEM NEOPLASM
     Dosage: 8 G/M2 OTH IV
     Route: 042
  2. METHOTREXATE [Suspect]
     Indication: LYMPHOMA
     Dosage: 8 G/M2 OTH IV
     Route: 042

REACTIONS (10)
  - APHASIA [None]
  - BRAIN OEDEMA [None]
  - FACIAL PALSY [None]
  - GAIT DISTURBANCE [None]
  - GLIOSIS [None]
  - HEMIPARESIS [None]
  - NEUROTOXICITY [None]
  - PARAESTHESIA [None]
  - UPPER MOTOR NEURONE LESION [None]
  - VOMITING [None]
